FAERS Safety Report 10215636 (Version 1)
Quarter: 2014Q2

REPORT INFORMATION
  Report Type: Spontaneous
  Country: CN (occurrence: None)
  Receive Date: 20140602
  Receipt Date: 20140602
  Transmission Date: 20141212
  Serious: Yes (Death)
  Sender: FDA-Public Use
  Company Number: 2014P1004523

PATIENT
  Age: 76 Year
  Sex: Male

DRUGS (3)
  1. DEXAMETHASONE [Suspect]
     Indication: WALDENSTROM^S MACROGLOBULINAEMIA
     Route: 042
  2. BORTEZOMIB [Suspect]
     Indication: WALDENSTROM^S MACROGLOBULINAEMIA
     Route: 058
  3. RITUXIMAB [Concomitant]

REACTIONS (11)
  - Pyrexia [None]
  - Blood pressure decreased [None]
  - Pain in extremity [None]
  - Oedema peripheral [None]
  - Septic shock [None]
  - Necrosis [None]
  - Klebsiella test positive [None]
  - Blood culture positive [None]
  - Culture tissue specimen positive [None]
  - Inflammatory bowel disease [None]
  - Gastrointestinal erosion [None]
